FAERS Safety Report 8922430 (Version 1)
Quarter: 2012Q4

REPORT INFORMATION
  Report Type: Spontaneous
  Country: ES (occurrence: None)
  Receive Date: 20121109
  Receipt Date: 20121109
  Transmission Date: 20130627
  Serious: Yes (Hospitalization)
  Sender: FDA-Public Use
  Company Number: 2012S1000711

PATIENT
  Age: 69 Year
  Sex: Male

DRUGS (1)
  1. CUBICIN [Suspect]
     Dates: start: 20120810, end: 20120816

REACTIONS (2)
  - Toxic skin eruption [None]
  - Vulvovaginal pruritus [None]
